FAERS Safety Report 8356309-2 (Version None)
Quarter: 2012Q2

REPORT INFORMATION
  Report Type: 
  Country: None (occurrence: None)
  Receive Date: 20120514
  Receipt Date: 20120430
  Transmission Date: 20120825
  Serious: Yes (Hospitalization)
  Sender: FDA-Public Use
  Company Number: FR-VERTEX PHARMACEUTICALS INC.-000000000000000644

PATIENT
  Sex: Male

DRUGS (2)
  1. INCIVO [Suspect]
     Indication: HEPATITIS C
     Dosage: DOSAGE FORM: TABLET
     Route: 048
  2. ALFUZOSIN HCL [Interacting]
     Indication: PROSTATIC ADENOMA
     Dosage: DOSAGE FORM: UNSPECIFIED
     Route: 065

REACTIONS (4)
  - CONTRAINDICATION TO MEDICAL TREATMENT [None]
  - ANURIA [None]
  - DRUG INTERACTION [None]
  - ASTHENIA [None]
